FAERS Safety Report 15227193 (Version 2)
Quarter: 2019Q4

REPORT INFORMATION
  Report Type: Spontaneous
  Country: US (occurrence: US)
  Receive Date: 20180801
  Receipt Date: 20191002
  Transmission Date: 20200122
  Serious: Yes (Hospitalization)
  Sender: FDA-Public Use
  Company Number: US-CYCLE PHARMACEUTICALS LTD-2018-CYC-000003

PATIENT
  Age: 21 Year
  Sex: Female

DRUGS (3)
  1. PRENATAL                           /00231801/ [Concomitant]
     Active Substance: VITAMINS
  2. NITISINONE [Suspect]
     Active Substance: NITISINONE
     Indication: TYROSINAEMIA
     Dosage: 10 MG, QD
     Route: 048
  3. NITYR [Suspect]
     Active Substance: NITISINONE
     Indication: TYROSINAEMIA
     Dosage: 10 MG, QD
     Route: 048

REACTIONS (3)
  - Intentional dose omission [Unknown]
  - Abdominal pain [Unknown]
  - Hepatic pain [Unknown]

NARRATIVE: CASE EVENT DATE: 20180725
